FAERS Safety Report 13583483 (Version 1)
Quarter: 2017Q2

REPORT INFORMATION
  Report Type: Spontaneous
  Country: GB (occurrence: GB)
  Receive Date: 20170526
  Receipt Date: 20170526
  Transmission Date: 20170830
  Serious: Yes (Other)
  Sender: FDA-Public Use
  Company Number: GB-ABBVIE-17K-167-1987156-00

PATIENT
  Age: 64 Year
  Sex: Female

DRUGS (2)
  1. HUMIRA [Suspect]
     Active Substance: ADALIMUMAB
     Route: 058
  2. HUMIRA [Suspect]
     Active Substance: ADALIMUMAB
     Indication: COLITIS ULCERATIVE
     Route: 058
     Dates: start: 20161220

REACTIONS (8)
  - Syncope [Unknown]
  - Pain [Unknown]
  - Rash pruritic [Not Recovered/Not Resolved]
  - Emotional distress [Unknown]
  - Malaise [Not Recovered/Not Resolved]
  - Cardiac disorder [Unknown]
  - Decreased appetite [Unknown]
  - Colitis ulcerative [Unknown]
